FAERS Safety Report 10196201 (Version 1)
Quarter: 2014Q2

REPORT INFORMATION
  Report Type: Spontaneous
  Country: GB (occurrence: None)
  Receive Date: 20140522
  Receipt Date: 20140522
  Transmission Date: 20141212
  Serious: Yes (Disabling, Other)
  Sender: FDA-Public Use
  Company Number: GB-DEXPHARM-20140259

PATIENT
  Sex: Female

DRUGS (2)
  1. OMEPRAZOLE [Suspect]
     Indication: GASTROOESOPHAGEAL REFLUX DISEASE
     Route: 048
  2. AMITRYPTILINE [Concomitant]

REACTIONS (8)
  - Blood immunoglobulin M abnormal [None]
  - Fatigue [None]
  - Dyspepsia [None]
  - Pain [None]
  - Pain in extremity [None]
  - Skin discolouration [None]
  - Dyspepsia [None]
  - Drug withdrawal syndrome [None]
